FAERS Safety Report 24648733 (Version 1)
Quarter: 2024Q4

REPORT INFORMATION
  Report Type: Spontaneous
  Country: US (occurrence: US)
  Receive Date: 20241121
  Receipt Date: 20241121
  Transmission Date: 20250115
  Serious: Yes (Other)
  Sender: INCYTE
  Company Number: US-002147023-NVSC2024US221444

PATIENT

DRUGS (1)
  1. JAKAFI [Suspect]
     Active Substance: RUXOLITINIB
     Indication: Myelofibrosis
     Dosage: 5 MG, QD (STANDARD DOSE: 20 MG TWICE A DAY)
     Route: 065
     Dates: start: 201803

REACTIONS (2)
  - Gastrointestinal haemorrhage [Recovered/Resolved]
  - Cytopenia [Recovering/Resolving]
